FAERS Safety Report 9838255 (Version 1)
Quarter: 2013Q4

REPORT INFORMATION
  Report Type: Spontaneous
  Country: US (occurrence: None)
  Receive Date: 20131205
  Receipt Date: 20131205
  Transmission Date: 20140711
  Serious: Yes (Other)
  Sender: FDA-Public Use
  Company Number: 163-POMAL-13074168

PATIENT
  Age: 69 Year
  Sex: Female
  Weight: 63.96 kg

DRUGS (8)
  1. POMALYST [Suspect]
     Indication: PLASMA CELL MYELOMA
     Dosage: 2 MG, 21 IN 21D, PO
     Route: 048
     Dates: start: 20130408
  2. LASIX (FUROSEMIDE) [Concomitant]
  3. NEURONTIN (GABAPENTIN) [Concomitant]
  4. DECADRON (DEXAMETHASONE) [Concomitant]
  5. FLONASE (FLUTICASONE PROPIONATE) [Concomitant]
  6. PRILOSEC (OMEPRAZOLE) [Concomitant]
  7. ATIVAN (LORAZEPAM) [Concomitant]
  8. FENTANYL (FENTANYL) [Concomitant]

REACTIONS (3)
  - Malaise [None]
  - Arthropod bite [None]
  - Swelling [None]
